FAERS Safety Report 5971501-X (Version None)
Quarter: 2008Q4

REPORT INFORMATION
  Report Type: 
  Country: None (occurrence: None)
  Receive Date: 20081201
  Receipt Date: 20081126
  Transmission Date: 20090506
  Serious: Yes (Hospitalization)
  Sender: FDA-Public Use
  Company Number: JP-BRISTOL-MYERS SQUIBB COMPANY-14416861

PATIENT
  Age: 72 Year
  Sex: Female

DRUGS (2)
  1. TAXOL [Suspect]
     Indication: BREAST CANCER
     Dosage: THERAPY INITIATED IN JAN-2006. 11TH CYCLE IN OCT-2006
     Route: 041
     Dates: start: 20061201, end: 20061201
  2. HERCEPTIN [Suspect]
     Indication: BREAST CANCER
     Dosage: INITIATED IN JAN-2006 AND RESTARTED IN FEB-2008
     Route: 041
     Dates: start: 20061201, end: 20061201

REACTIONS (1)
  - COLITIS ULCERATIVE [None]
